FAERS Safety Report 6646375-4 (Version None)
Quarter: 2010Q1

REPORT INFORMATION
  Report Type: 
  Country: None (occurrence: None)
  Receive Date: 20100318
  Receipt Date: 20100309
  Transmission Date: 20100710
  Serious: Yes (Other)
  Sender: FDA-Public Use
  Company Number: ALL1-2010-01464

PATIENT
  Age: 77 Year
  Sex: Male
  Weight: 74.8 kg

DRUGS (2)
  1. FOSRENOL [Suspect]
     Indication: HYPERPHOSPHATAEMIA
     Dosage: 2 TABLETS OF UNKNOWN MG, WITH MEALS, ORAL
     Route: 048
     Dates: start: 20090101
  2. ZOCOR [Concomitant]

REACTIONS (3)
  - ABDOMINAL PAIN [None]
  - DIARRHOEA [None]
  - RENAL CANCER [None]
